FAERS Safety Report 16230630 (Version 2)
Quarter: 2019Q2

REPORT INFORMATION
  Report Type: Report from Study
  Country: US (occurrence: US)
  Receive Date: 20190423
  Receipt Date: 20190503
  Transmission Date: 20190711
  Serious: Yes (Hospitalization)
  Sender: FDA-Public Use
  Company Number: US-ACTELION-A-US2019-189462

PATIENT
  Sex: Female
  Weight: 68.03 kg

DRUGS (3)
  1. UPTRAVI [Suspect]
     Active Substance: SELEXIPAG
     Indication: PULMONARY ARTERIAL HYPERTENSION
     Dosage: 200 MCG, BID
     Route: 048
  2. LETAIRIS [Concomitant]
     Active Substance: AMBRISENTAN
  3. UPTRAVI [Suspect]
     Active Substance: SELEXIPAG
     Dosage: 600 MCG, BID
     Route: 048

REACTIONS (9)
  - Cardiac failure congestive [Unknown]
  - Nausea [Unknown]
  - Acute kidney injury [Unknown]
  - Condition aggravated [Unknown]
  - Pain in jaw [Unknown]
  - Renal pain [Unknown]
  - Product dose omission [Unknown]
  - Tooth disorder [Unknown]
  - Dehydration [Unknown]
